FAERS Safety Report 23681428 (Version 3)
Quarter: 2024Q2

REPORT INFORMATION
  Report Type: Spontaneous
  Country: RO (occurrence: RO)
  Receive Date: 20240328
  Receipt Date: 20240412
  Transmission Date: 20240716
  Serious: Yes (Other)
  Sender: FDA-Public Use
  Company Number: RO-PFIZER INC-PV202400037334

PATIENT
  Age: 69 Year
  Sex: Female

DRUGS (4)
  1. LETROZOLE [Suspect]
     Active Substance: LETROZOLE
     Indication: Invasive ductal breast carcinoma
     Dosage: 2.5 MG, QD
     Route: 065
     Dates: start: 20220317
  2. ZOMETA [Suspect]
     Active Substance: ZOLEDRONIC ACID
     Indication: Invasive ductal breast carcinoma
     Dosage: 4 MG, EVERY 12 WEEKS
     Route: 065
     Dates: start: 20220317
  3. PALBOCICLIB [Suspect]
     Active Substance: PALBOCICLIB
     Indication: Breast cancer metastatic
     Dosage: 100 MG, CYCLIC
     Route: 065
     Dates: start: 20220901
  4. PALBOCICLIB [Suspect]
     Active Substance: PALBOCICLIB
     Indication: Invasive ductal breast carcinoma
     Dosage: 125 MG, CYCLIC QD, (D1-D21) (21 DAYS / 7 DAYS BREAK)
     Route: 065
     Dates: start: 20220317, end: 20220831

REACTIONS (1)
  - Neutropenia [Recovered/Resolved]
